FAERS Safety Report 11794946 (Version 1)
Quarter: 2015Q4

REPORT INFORMATION
  Report Type: Spontaneous
  Country: ES (occurrence: ES)
  Receive Date: 20151202
  Receipt Date: 20151202
  Transmission Date: 20160305
  Serious: Yes (Hospitalization)
  Sender: FDA-Public Use
  Company Number: ES-IMPAX LABORATORIES, INC-2015-IPXL-01206

PATIENT
  Age: 19 Year
  Sex: Male

DRUGS (2)
  1. BACLOFEN. [Suspect]
     Active Substance: BACLOFEN
     Indication: DYSTONIA
     Dosage: UNK
     Route: 048
  2. BACLOFEN. [Suspect]
     Active Substance: BACLOFEN
     Indication: PAIN
     Dosage: UNK
     Route: 037

REACTIONS (3)
  - Treatment failure [Unknown]
  - Multi-organ failure [Not Recovered/Not Resolved]
  - Hyperthermia [Recovering/Resolving]
